FAERS Safety Report 25713188 (Version 1)
Quarter: 2025Q3

REPORT INFORMATION
  Report Type: Spontaneous
  Country: EC (occurrence: EC)
  Receive Date: 20250822
  Receipt Date: 20250822
  Transmission Date: 20251020
  Serious: Yes (Death, Hospitalization, Other)
  Sender: BRISTOL-MYERS SQUIBB COMPANY
  Company Number: EC-BRISTOL-MYERS SQUIBB COMPANY-2025-116395

PATIENT
  Age: 61 Year
  Sex: Female

DRUGS (2)
  1. OPDIVO [Suspect]
     Active Substance: NIVOLUMAB
     Indication: Ovarian cancer
     Dosage: CAJA X 1 VIAL 100 MG/10 ML (10 MG/ML)
     Route: 042
     Dates: start: 20250618, end: 20250710
  2. YERVOY [Suspect]
     Active Substance: IPILIMUMAB
     Indication: Ovarian cancer
     Dosage: 50 MG/10 ML
     Route: 042
     Dates: start: 20250618, end: 20250710

REACTIONS (5)
  - Pulmonary sepsis [Fatal]
  - Respiratory distress [Fatal]
  - Pleural effusion [Fatal]
  - Pneumonia [Fatal]
  - Off label use [Unknown]

NARRATIVE: CASE EVENT DATE: 20250716
